FAERS Safety Report 23266168 (Version 1)
Quarter: 2023Q4

REPORT INFORMATION
  Report Type: Spontaneous
  Country: US (occurrence: US)
  Receive Date: 20231206
  Receipt Date: 20231206
  Transmission Date: 20240110
  Serious: Yes (Other)
  Sender: FDA-Public Use
  Company Number: US-JNJFOC-20231200202

PATIENT
  Sex: Female

DRUGS (1)
  1. TOPAMAX [Suspect]
     Active Substance: TOPIRAMATE
     Indication: Seizure
     Dosage: SINCE 2004-2005
     Route: 048
     Dates: start: 2004

REACTIONS (3)
  - Disability [Unknown]
  - Eye pain [Unknown]
  - Discomfort [Unknown]
